FAERS Safety Report 10931198 (Version 2)
Quarter: 2015Q2

REPORT INFORMATION
  Report Type: Spontaneous
  Country: US (occurrence: None)
  Receive Date: 20150318
  Receipt Date: 20150514
  Transmission Date: 20150821
  Serious: Yes (Other)
  Sender: FDA-Public Use
  Company Number: 2015030025

PATIENT
  Age: 35 Year
  Sex: Female
  Weight: 57 kg

DRUGS (2)
  1. DYMISTA [Suspect]
     Active Substance: AZELASTINE HYDROCHLORIDE\FLUTICASONE PROPIONATE
     Indication: HYPERSENSITIVITY
     Dosage: IN
  2. CITALOPRAM [Concomitant]
     Active Substance: CITALOPRAM HYDROBROMIDE

REACTIONS (13)
  - Abdominal discomfort [None]
  - Local swelling [None]
  - Coordination abnormal [None]
  - Dry mouth [None]
  - Nasal disorder [None]
  - Balance disorder [None]
  - Rhinorrhoea [None]
  - Tremor [None]
  - Dyspnoea [None]
  - Fatigue [None]
  - Nausea [None]
  - Burning sensation [None]
  - Sneezing [None]
